FAERS Safety Report 9405688 (Version 2)
Quarter: 2013Q3

REPORT INFORMATION
  Report Type: Spontaneous
  Country: US (occurrence: US)
  Receive Date: 20130717
  Receipt Date: 20130719
  Transmission Date: 20140515
  Serious: Yes (Other)
  Sender: FDA-Public Use
  Company Number: US-PFIZER INC-2013207805

PATIENT
  Sex: Female

DRUGS (1)
  1. LYRICA [Suspect]
     Dosage: UNK

REACTIONS (7)
  - Drug abuse [Unknown]
  - Circumstance or information capable of leading to medication error [Unknown]
  - Abnormal behaviour [Unknown]
  - Mood altered [Unknown]
  - Gambling [Unknown]
  - Tobacco user [Unknown]
  - Eating disorder [Unknown]
